FAERS Safety Report 5885296-1 (Version None)
Quarter: 2008Q3

REPORT INFORMATION
  Report Type: 
  Country: None (occurrence: None)
  Receive Date: 20080916
  Receipt Date: 20080905
  Transmission Date: 20090109
  Serious: Yes (Other)
  Sender: FDA-Public Use
  Company Number: US-NOVOPROD-279096

PATIENT
  Age: 77 Year
  Sex: Male

DRUGS (1)
  1. NOVOLIN N [Suspect]
     Indication: INSULIN-REQUIRING TYPE 2 DIABETES MELLITUS
     Dosage: 72 IU, QD
     Route: 058
     Dates: start: 19980101

REACTIONS (3)
  - BLOOD GLUCOSE INCREASED [None]
  - DYSPNOEA [None]
  - SKIN INFECTION [None]
